FAERS Safety Report 8424477-X (Version None)
Quarter: 2012Q2

REPORT INFORMATION
  Report Type: 
  Country: None (occurrence: None)
  Receive Date: 20120610
  Receipt Date: 20120531
  Transmission Date: 20120825
  Serious: Yes (Hospitalization)
  Sender: FDA-Public Use
  Company Number: US-VERTEX PHARMACEUTICALS INC.-AE-2012-006390

PATIENT
  Sex: Male
  Weight: 90.8 kg

DRUGS (10)
  1. FLUOXETINE [Concomitant]
  2. M.V.I. [Concomitant]
  3. RIBAVIRIN [Concomitant]
     Indication: HEPATITIS C
     Route: 048
     Dates: start: 20120330, end: 20120514
  4. LORATADINE [Concomitant]
  5. INCIVEK [Suspect]
     Indication: HEPATITIS C
     Route: 048
     Dates: start: 20120330, end: 20120514
  6. PEGASYS [Concomitant]
     Indication: HEPATITIS C
     Route: 058
     Dates: start: 20120330, end: 20120514
  7. COZAAR [Concomitant]
  8. ATARAX [Concomitant]
  9. ALLOPURINOL [Concomitant]
     Indication: GOUT
     Route: 048
  10. NORCO [Concomitant]

REACTIONS (7)
  - GOUT [None]
  - PYREXIA [None]
  - CHILLS [None]
  - OEDEMA PERIPHERAL [None]
  - DYSPNOEA [None]
  - RASH GENERALISED [None]
  - TREMOR [None]
